FAERS Safety Report 23584872 (Version 4)
Quarter: 2024Q4

REPORT INFORMATION
  Report Type: Spontaneous
  Country: US (occurrence: US)
  Receive Date: 20240301
  Receipt Date: 20241104
  Transmission Date: 20250115
  Serious: Yes (Other)
  Sender: CHATTEM
  Company Number: US-OPELLA-2024OHG006099

PATIENT

DRUGS (1)
  1. ALLEGRA ALLERGY [Suspect]
     Active Substance: FEXOFENADINE HYDROCHLORIDE
     Indication: Product used for unknown indication
     Dosage: BLI 1 X 12

REACTIONS (7)
  - Neuropathy peripheral [Unknown]
  - Palpitations [Unknown]
  - Blood pressure abnormal [Unknown]
  - Anxiety [Unknown]
  - Urticaria [Unknown]
  - Flushing [Unknown]
  - Pruritus [Unknown]
